FAERS Safety Report 12288247 (Version 1)
Quarter: 2016Q2

REPORT INFORMATION
  Report Type: Spontaneous
  Country: US (occurrence: US)
  Receive Date: 20160420
  Receipt Date: 20160420
  Transmission Date: 20160815
  Serious: No
  Sender: FDA-Public Use
  Company Number: US-009507513-1604USA012268

PATIENT
  Sex: Female

DRUGS (4)
  1. TRICORT [Suspect]
     Active Substance: TRIAMCINOLONE ACETONIDE
  2. GLIPIZIDE. [Suspect]
     Active Substance: GLIPIZIDE
  3. NOVOLOG [Suspect]
     Active Substance: INSULIN ASPART
  4. JANUVIA [Suspect]
     Active Substance: SITAGLIPTIN PHOSPHATE
     Route: 048

REACTIONS (3)
  - Weight increased [Unknown]
  - Blood glucose fluctuation [Unknown]
  - Increased appetite [Unknown]
